FAERS Safety Report 4307190-X (Version None)
Quarter: 2004Q1

REPORT INFORMATION
  Report Type: 
  Country: None (occurrence: None)
  Receive Date: 20040225
  Receipt Date: 20040218
  Transmission Date: 20041129
  Serious: No
  Sender: FDA-Public Use
  Company Number: 2004-112608-NL

PATIENT
  Sex: Male

DRUGS (2)
  1. MIRTAZAPINE [Suspect]
     Dosage: DF
  2. NEFAZODONE HYDROCHLORIDE [Concomitant]

REACTIONS (3)
  - DRUG INTERACTION [None]
  - JAUNDICE [None]
  - LIVER FUNCTION TEST ABNORMAL [None]
